FAERS Safety Report 9683980 (Version 5)
Quarter: 2014Q1

REPORT INFORMATION
  Report Type: Report from Study
  Country: FR (occurrence: FR)
  Receive Date: 20131112
  Receipt Date: 20140212
  Transmission Date: 20141002
  Serious: Yes (Congenital Anomaly, Other)
  Sender: FDA-Public Use
  Company Number: FR-B.I. PHARMACEUTICALS,INC./RIDGEFIELD-2013-BI-35730BI

PATIENT
  Sex: Female
  Weight: 3.13 kg

DRUGS (3)
  1. VIRAMUNE [Suspect]
     Indication: EXPOSURE DURING PREGNANCY
     Route: 064
  2. COMBIVIR [Concomitant]
     Indication: EXPOSURE DURING PREGNANCY
     Route: 064
  3. RETROVIR [Concomitant]
     Indication: EXPOSURE DURING PREGNANCY
     Route: 064
     Dates: start: 20101108, end: 20101108

REACTIONS (6)
  - Pulmonary artery atresia [Unknown]
  - Neonatal respiratory failure [Unknown]
  - Patent ductus arteriosus [Unknown]
  - Congenital tricuspid valve incompetence [Unknown]
  - Atrial septal defect [Unknown]
  - Cardiac murmur [Unknown]
